FAERS Safety Report 20156535 (Version 1)
Quarter: 2021Q4

REPORT INFORMATION
  Report Type: Spontaneous
  Country: TR (occurrence: TR)
  Receive Date: 20211207
  Receipt Date: 20211207
  Transmission Date: 20220303
  Serious: Yes (Other)
  Sender: FDA-Public Use
  Company Number: TR-MLMSERVICE-20211125-3236247-1

PATIENT
  Age: 44 Year
  Sex: Female

DRUGS (10)
  1. DEXAMETHASONE [Suspect]
     Active Substance: DEXAMETHASONE
     Indication: COVID-19
     Route: 048
     Dates: start: 20201125, end: 2020
  2. DEXAMETHASONE [Suspect]
     Active Substance: DEXAMETHASONE
     Indication: Product use in unapproved indication
  3. DEXAMETHASONE [Suspect]
     Active Substance: DEXAMETHASONE
     Indication: COVID-19
     Dosage: DOSE WAS REDUCED DAILY IN ACCORDANCE WITH THE PATENT^S CLINICAL CONDITION.
     Route: 042
     Dates: start: 2020
  4. DEXAMETHASONE [Suspect]
     Active Substance: DEXAMETHASONE
     Route: 065
     Dates: start: 202101
  5. ENOXAPARIN SODIUM [Concomitant]
     Active Substance: ENOXAPARIN SODIUM
     Indication: COVID-19
     Route: 042
     Dates: start: 202011
  6. OXYGEN [Concomitant]
     Active Substance: OXYGEN
     Indication: COVID-19
     Dates: start: 202011, end: 202012
  7. OXYGEN [Concomitant]
     Active Substance: OXYGEN
     Dosage: NEED FOR NASAL OXYGEN WAS INCREASED
     Route: 045
     Dates: start: 202012, end: 202101
  8. FAVIPIRAVIR [Concomitant]
     Active Substance: FAVIPIRAVIR
     Indication: COVID-19
     Dates: start: 2020, end: 2020
  9. FAVIPIRAVIR [Concomitant]
     Active Substance: FAVIPIRAVIR
     Dates: start: 2020, end: 2020
  10. LEVOFLOXACIN [Concomitant]
     Active Substance: LEVOFLOXACIN
     Indication: COVID-19
     Route: 042
     Dates: start: 202011

REACTIONS (2)
  - Osteonecrosis [Unknown]
  - Product use in unapproved indication [Unknown]

NARRATIVE: CASE EVENT DATE: 20201101
